FAERS Safety Report 23517167 (Version 1)
Quarter: 2024Q1

REPORT INFORMATION
  Report Type: Spontaneous
  Country: NO (occurrence: NO)
  Receive Date: 20240213
  Receipt Date: 20240213
  Transmission Date: 20240409
  Serious: Yes (Other)
  Sender: FDA-Public Use
  Company Number: None

PATIENT
  Age: 37 Year
  Sex: Female
  Weight: 65 kg

DRUGS (1)
  1. ZOLOFT [Suspect]
     Active Substance: SERTRALINE HYDROCHLORIDE
     Indication: Depression
     Dosage: 25 MILLIGRAM, QD
     Route: 048
     Dates: start: 20231009, end: 20231024

REACTIONS (9)
  - Tunnel vision [Unknown]
  - Disability [Unknown]
  - Vision blurred [Recovering/Resolving]
  - Pain [Unknown]
  - Accommodation disorder [Recovering/Resolving]
  - Oesophageal spasm [Recovered/Resolved]
  - Asthenopia [Unknown]
  - Dyspepsia [Unknown]
  - Visual impairment [Recovering/Resolving]

NARRATIVE: CASE EVENT DATE: 20231021
